FAERS Safety Report 24957970 (Version 1)
Quarter: 2025Q1

REPORT INFORMATION
  Report Type: Spontaneous
  Country: CA (occurrence: CA)
  Receive Date: 20250212
  Receipt Date: 20250212
  Transmission Date: 20250409
  Serious: Yes (Other)
  Sender: GLAND PHARMA LTD
  Company Number: CA-GLANDPHARMA-CA-2025GLNLIT00228

PATIENT
  Age: 66 Year
  Sex: Female

DRUGS (2)
  1. MITOMYCIN [Suspect]
     Active Substance: MITOMYCIN
     Indication: Bleb revision
     Route: 057
  2. LIDOCAINE [Concomitant]
     Active Substance: LIDOCAINE
     Indication: Bleb revision
     Route: 065

REACTIONS (4)
  - Necrotising retinitis [Recovered/Resolved]
  - Ophthalmoplegia [Recovered/Resolved]
  - Eyelid ptosis [Recovered/Resolved]
  - Product use in unapproved indication [Unknown]
